FAERS Safety Report 14789147 (Version 2)
Quarter: 2018Q3

REPORT INFORMATION
  Report Type: Spontaneous
  Country: FR (occurrence: FR)
  Receive Date: 20180423
  Receipt Date: 20180823
  Transmission Date: 20181010
  Serious: Yes (Other)
  Sender: FDA-Public Use
  Company Number: PHHY2018FR065123

PATIENT
  Age: 65 Year
  Sex: Female

DRUGS (7)
  1. FLUIDABAK [Concomitant]
     Active Substance: POVIDONE
     Indication: OPEN ANGLE GLAUCOMA
     Dosage: UNK
     Route: 065
     Dates: end: 201803
  2. TOBRADEX [Suspect]
     Active Substance: DEXAMETHASONE\TOBRAMYCIN
     Indication: POSTOPERATIVE CARE
     Dosage: UNK UNK, TID
     Route: 065
     Dates: start: 201803
  3. GANFORT [Concomitant]
     Active Substance: BIMATOPROST\TIMOLOL
     Dosage: IN SINGLE DOSE UNITS, AT BEDTIME
     Route: 047
  4. TOBRADEX [Suspect]
     Active Substance: DEXAMETHASONE\TOBRAMYCIN
     Route: 047
  5. GANFORT [Concomitant]
     Active Substance: BIMATOPROST\TIMOLOL
     Indication: OPEN ANGLE GLAUCOMA
     Dosage: 1 G, QD
     Route: 065
     Dates: end: 201803
  6. BRINZOLAMIDE [Suspect]
     Active Substance: BRINZOLAMIDE
     Indication: OPEN ANGLE GLAUCOMA
     Dosage: UNK
     Route: 065
     Dates: end: 201803
  7. YELLOX [Concomitant]
     Active Substance: BROMFENAC SODIUM
     Indication: POSTOPERATIVE CARE
     Dosage: UNK
     Route: 047
     Dates: start: 201803

REACTIONS (8)
  - Photophobia [Recovered/Resolved]
  - Off label use [Recovered/Resolved]
  - Punctate keratitis [Recovered/Resolved]
  - Condition aggravated [Recovered/Resolved]
  - Ulcerative keratitis [Recovered/Resolved]
  - Visual acuity reduced [Recovered/Resolved]
  - Eye ulcer [Recovered/Resolved]
  - Cataract [Recovered/Resolved]

NARRATIVE: CASE EVENT DATE: 2018
